FAERS Safety Report 5754451-3 (Version None)
Quarter: 2008Q2

REPORT INFORMATION
  Report Type: 
  Country: None (occurrence: None)
  Receive Date: 20080530
  Receipt Date: 20080107
  Transmission Date: 20081010
  Serious: No
  Sender: FDA-Public Use
  Company Number: US-BOEHRINGER INGELHEIM GMBH, GERMANY-2007-BP-21915BP

PATIENT
  Sex: Female
  Weight: 72 kg

DRUGS (26)
  1. MIRAPEX [Suspect]
     Indication: PARKINSON'S DISEASE
     Route: 048
     Dates: start: 20010917, end: 20031201
  2. HYDROCODONE BITARTRATE [Concomitant]
  3. IBUROFEN [Concomitant]
  4. PHENERGAN [Concomitant]
  5. COLYTE SOLUTION [Concomitant]
  6. BUPROPION HCL [Concomitant]
  7. KEFLEX [Concomitant]
  8. K-DUR [Concomitant]
  9. CATAPRES [Concomitant]
  10. FOSAMAX [Concomitant]
  11. CYCLOBENZAPRINE HCL [Concomitant]
  12. QUININE SULFATE [Concomitant]
  13. LOVASTATIN [Concomitant]
  14. PROPOXYPHENE-N [Concomitant]
  15. PREMARIN [Concomitant]
  16. PROVERA [Concomitant]
  17. TENORMIN [Concomitant]
  18. COMTAN [Concomitant]
     Indication: PARKINSON'S DISEASE
  19. CARBIDOPA AND LEVODOPA [Concomitant]
     Indication: PARKINSON'S DISEASE
  20. ATENOLOL [Concomitant]
     Indication: HYPERTENSION
  21. OMEPRAZOLE [Concomitant]
     Indication: PROPHYLAXIS
  22. NEUPRO [Concomitant]
     Indication: PARKINSON'S DISEASE
  23. FORTICAL [Concomitant]
     Indication: OSTEOPOROSIS
  24. CALTRATE [Concomitant]
     Indication: OSTEOPOROSIS
  25. CELEXA [Concomitant]
     Indication: DEPRESSION
  26. LORAZEPAM [Concomitant]
     Indication: ANXIETY

REACTIONS (5)
  - DEPRESSION [None]
  - EMOTIONAL DISTRESS [None]
  - HYPERPHAGIA [None]
  - OBSESSIVE-COMPULSIVE DISORDER [None]
  - PATHOLOGICAL GAMBLING [None]
